FAERS Safety Report 10414759 (Version 1)
Quarter: 2014Q2

REPORT INFORMATION
  Report Type: Spontaneous
  Country: US (occurrence: None)
  Receive Date: 20140514
  Receipt Date: 20140514
  Transmission Date: 20141212
  Serious: Yes (Hospitalization)
  Sender: FDA-Public Use
  Company Number: 108116U

PATIENT
  Age: 59 Year
  Sex: Male
  Weight: 106 kg

DRUGS (13)
  1. CIMZIA [Suspect]
     Indication: RHEUMATOID ARTHRITIS
     Dosage: 1X/2 WEEKS, TOOK FOR ABOUT 6 MONTHS
     Dates: start: 201307, end: 201312
  2. INSULIN [Concomitant]
  3. BENAZEPRIL [Concomitant]
  4. LASIX [Concomitant]
  5. LEVOTHYROXINE [Concomitant]
  6. GABAPENTIN [Concomitant]
  7. SINGULAIR [Concomitant]
  8. FEBUXOSTAT [Concomitant]
  9. TOPRAL [Concomitant]
  10. COLCHICINE [Concomitant]
  11. ASA [Concomitant]
  12. ACTEMRA [Concomitant]
  13. LORTAB [Concomitant]

REACTIONS (5)
  - Cystitis [None]
  - Kidney infection [None]
  - Nephrolithiasis [None]
  - Ear infection [None]
  - Drug ineffective [None]
